FAERS Safety Report 23642183 (Version 1)
Quarter: 2024Q1

REPORT INFORMATION
  Report Type: Spontaneous
  Country: IT (occurrence: IT)
  Receive Date: 20240318
  Receipt Date: 20240318
  Transmission Date: 20240410
  Serious: Yes (Hospitalization)
  Sender: FDA-Public Use
  Company Number: IT-IDORSIA-007652-2024-IT

PATIENT
  Age: 77 Year
  Sex: Female

DRUGS (5)
  1. QUVIVIQ [Suspect]
     Active Substance: DARIDOREXANT
     Indication: Insomnia
     Dosage: 50 MG
     Route: 065
     Dates: start: 20240205
  2. VALPROATE SODIUM [Concomitant]
     Active Substance: VALPROATE SODIUM
     Dosage: 600 MG, QD
     Dates: start: 202309
  3. LYRICA [Concomitant]
     Active Substance: PREGABALIN
     Dosage: 50 MG
  4. LYRICA [Concomitant]
     Active Substance: PREGABALIN
     Dosage: 25 MG
  5. XANAX [Concomitant]
     Active Substance: ALPRAZOLAM
     Dosage: 0.25 DOSAGE FORM

REACTIONS (6)
  - Fall [Unknown]
  - Limb injury [Unknown]
  - Upper limb fracture [Unknown]
  - Drug ineffective [Unknown]
  - Pain [Unknown]
  - Somnolence [Unknown]

NARRATIVE: CASE EVENT DATE: 20240304
